FAERS Safety Report 20112876 (Version 1)
Quarter: 2021Q4

REPORT INFORMATION
  Report Type: Spontaneous
  Country: CA (occurrence: CA)
  Receive Date: 20211125
  Receipt Date: 20211125
  Transmission Date: 20220303
  Serious: Yes (Other)
  Sender: FDA-Public Use
  Company Number: CA-APOTEX-2021AP045604

PATIENT
  Sex: Male

DRUGS (17)
  1. CARBIDOPA\LEVODOPA [Suspect]
     Active Substance: CARBIDOPA\LEVODOPA
     Indication: Tremor
     Dosage: UNK
     Route: 065
  2. CARBIDOPA\LEVODOPA [Suspect]
     Active Substance: CARBIDOPA\LEVODOPA
     Indication: Dysphonia
  3. SELEGILINE [Suspect]
     Active Substance: SELEGILINE
     Indication: Tremor
     Dosage: UNK
     Route: 065
  4. SELEGILINE [Suspect]
     Active Substance: SELEGILINE
     Indication: Dysphonia
  5. PRIMIDONE [Suspect]
     Active Substance: PRIMIDONE
     Indication: Resting tremor
     Dosage: UNK
     Route: 065
  6. PROPRANOLOL [Suspect]
     Active Substance: PROPRANOLOL HYDROCHLORIDE
     Indication: Resting tremor
     Dosage: UNK
     Route: 065
  7. GABAPENTIN [Suspect]
     Active Substance: GABAPENTIN
     Indication: Resting tremor
     Dosage: UNK
     Route: 065
  8. PRAMIPEXOLE [Suspect]
     Active Substance: PRAMIPEXOLE
     Indication: Resting tremor
     Dosage: 1 MILLIGRAM, TID
     Route: 065
  9. ROPINIROLE [Suspect]
     Active Substance: ROPINIROLE
     Indication: Resting tremor
     Dosage: UNK
     Route: 065
  10. AMANTADINE [Concomitant]
     Active Substance: AMANTADINE
     Indication: Resting tremor
     Dosage: 100 MILLIGRAM, BID
     Route: 065
  11. AMANTADINE [Concomitant]
     Active Substance: AMANTADINE
     Dosage: 200 MILLIGRAM, QD (PER DAY)
     Route: 065
  12. AMANTADINE [Concomitant]
     Active Substance: AMANTADINE
     Dosage: 100 MILLIGRAM, QD (PER DAY)
     Route: 065
  13. ETHOPROPAZINE [Concomitant]
     Active Substance: ETHOPROPAZINE
     Indication: Resting tremor
     Dosage: UNK
     Route: 065
  14. TRIHEXYPHENIDYL [Concomitant]
     Active Substance: TRIHEXYPHENIDYL
     Indication: Resting tremor
     Dosage: 2 MILLIGRAM, TID
     Route: 065
  15. BENSERAZIDE\LEVODOPA [Concomitant]
     Active Substance: BENSERAZIDE\LEVODOPA
     Indication: Resting tremor
     Dosage: UNK UNK, TID (200/50 MG)
     Route: 065
  16. BENSERAZIDE\LEVODOPA [Concomitant]
     Active Substance: BENSERAZIDE\LEVODOPA
     Dosage: UNK UNK, TID (100/25)
     Route: 065
  17. CLONAZEPAM [Concomitant]
     Active Substance: CLONAZEPAM
     Indication: Resting tremor
     Dosage: UNK
     Route: 065

REACTIONS (4)
  - Hallucination [Unknown]
  - Dizziness [Unknown]
  - Somnolence [Unknown]
  - Drug ineffective [Unknown]
